FAERS Safety Report 6769727-0 (Version None)
Quarter: 2010Q2

REPORT INFORMATION
  Report Type: 
  Country: None (occurrence: None)
  Receive Date: 20100615
  Receipt Date: 20100603
  Transmission Date: 20101027
  Serious: Yes (Hospitalization, Other)
  Sender: FDA-Public Use
  Company Number: PHHY2010MX36886

PATIENT
  Age: 34 Year
  Sex: Female

DRUGS (2)
  1. TEGRETOL [Suspect]
     Indication: EPILEPSY
     Dosage: 600 MG/DAY
     Route: 048
     Dates: start: 20090601, end: 20100601
  2. CAPTOPRIL [Concomitant]
     Dosage: 3 TABLETS PER DAY
     Route: 048

REACTIONS (2)
  - CONVULSION [None]
  - MYOCARDIAL INFARCTION [None]
